FAERS Safety Report 4705668-8 (Version None)
Quarter: 2005Q2

REPORT INFORMATION
  Report Type: 
  Country: None (occurrence: None)
  Receive Date: 20050629
  Receipt Date: 20050621
  Transmission Date: 20051028
  Serious: Yes (Hospitalization)
  Sender: FDA-Public Use
  Company Number: 2005-06-0253

PATIENT
  Sex: Female

DRUGS (5)
  1. CELESTAMINE TAB [Suspect]
     Indication: DRUG ERUPTION
     Dosage: ORAL
     Route: 048
  2. RINDERON-VG OINTMENT [Suspect]
     Indication: RASH
     Dosage: TOPICAL
     Route: 061
  3. VOLTAREN [Suspect]
     Indication: ARTHRALGIA
     Dosage: ORAL
     Route: 048
  4. PRAVASTATIN SODIUM [Suspect]
     Indication: HYPERCHOLESTEROLAEMIA
     Dosage: ORAL
     Route: 048
  5. AMLODIPINE BESILATE TABLETS [Concomitant]

REACTIONS (3)
  - DRUG ERUPTION [None]
  - MALAISE [None]
  - RASH [None]
